FAERS Safety Report 25529911 (Version 1)
Quarter: 2025Q3

REPORT INFORMATION
  Report Type: Spontaneous
  Country: AU (occurrence: AU)
  Receive Date: 20250708
  Receipt Date: 20250708
  Transmission Date: 20251020
  Serious: Yes (Life-Threatening, Hospitalization)
  Sender: ASCENT PHARMACEUTICALS INC
  Company Number: AU-ASCENT-2025ASLIT00125

PATIENT
  Age: 49 Year
  Sex: Female

DRUGS (5)
  1. OXYCODONE HYDROCHLORIDE [Suspect]
     Active Substance: OXYCODONE HYDROCHLORIDE
     Indication: Migraine
     Route: 065
  2. CODEINE [Suspect]
     Active Substance: CODEINE
     Indication: Migraine
     Route: 065
  3. MORPHINE [Suspect]
     Active Substance: MORPHINE
     Indication: Migraine
     Route: 048
  4. INSULIN ASPART [Concomitant]
     Active Substance: INSULIN ASPART
     Indication: Type 2 diabetes mellitus
     Dosage: 30, 40 UNITS
     Route: 065
  5. INSULIN ASPART [Concomitant]
     Active Substance: INSULIN ASPART
     Dosage: 32 UNITS
     Route: 065

REACTIONS (2)
  - Hypothalamic pituitary adrenal axis suppression [Not Recovered/Not Resolved]
  - Hypoglycaemia [Recovered/Resolved]
